FAERS Safety Report 24047256 (Version 1)
Quarter: 2024Q3

REPORT INFORMATION
  Report Type: Spontaneous
  Country: PL (occurrence: PL)
  Receive Date: 20240703
  Receipt Date: 20240703
  Transmission Date: 20241016
  Serious: Yes (Death, Hospitalization)
  Sender: JOHNSON AND JOHNSON
  Company Number: PL-BAYER-2024A094659

PATIENT
  Age: 75 Year
  Sex: Female
  Weight: 105 kg

DRUGS (3)
  1. XARELTO [Interacting]
     Active Substance: RIVAROXABAN
     Indication: Product used for unknown indication
     Route: 048
  2. TRAMADOL HYDROCHLORIDE [Suspect]
     Active Substance: TRAMADOL HYDROCHLORIDE
     Route: 048
  3. CARBAMAZEPINE [Suspect]
     Active Substance: CARBAMAZEPINE
     Route: 048

REACTIONS (4)
  - Central nervous system injury [Fatal]
  - Central nervous system haemorrhage [Fatal]
  - Drug interaction [Fatal]
  - Seizure [Fatal]

NARRATIVE: CASE EVENT DATE: 20240605
